FAERS Safety Report 4508383-9 (Version None)
Quarter: 2004Q4

REPORT INFORMATION
  Report Type: 
  Country: None (occurrence: None)
  Receive Date: 20041123
  Receipt Date: 20040123
  Transmission Date: 20050328
  Serious: No
  Sender: FDA-Public Use
  Company Number: US-GLAXOSMITHKLINE-A0495028A

PATIENT
  Age: 42 Year
  Sex: Female

DRUGS (4)
  1. WELLBUTRIN SR [Suspect]
     Indication: DEPRESSION
     Dosage: 100MG PER DAY
     Route: 048
  2. ZOLOFT [Concomitant]
  3. LORAZEPAM [Concomitant]
  4. BENZACLIN [Concomitant]

REACTIONS (2)
  - DIARRHOEA [None]
  - PHARMACEUTICAL PRODUCT COMPLAINT [None]
